FAERS Safety Report 25991902 (Version 1)
Quarter: 2025Q4

REPORT INFORMATION
  Report Type: Spontaneous
  Country: US (occurrence: US)
  Receive Date: 20251103
  Receipt Date: 20251103
  Transmission Date: 20260118
  Serious: No
  Sender: SANOFI AVENTIS
  Company Number: US-SA-2025SA319487

PATIENT
  Sex: Male

DRUGS (11)
  1. DUPIXENT [Suspect]
     Active Substance: DUPILUMAB
     Indication: Dermatitis atopic
     Dosage: 300 MG, Q4W
     Route: 058
     Dates: start: 20241217
  2. ALCLOMETASONE [Concomitant]
     Active Substance: ALCLOMETASONE
  3. CETIRIZINE [Concomitant]
     Active Substance: CETIRIZINE HYDROCHLORIDE
  4. EPIPEN JR [Concomitant]
     Active Substance: EPINEPHRINE
  5. FLUOCINOLONE ACETONIDE [Concomitant]
     Active Substance: FLUOCINOLONE ACETONIDE
  6. HYDROXYZINE HYDROCHLORIDE [Concomitant]
     Active Substance: HYDROXYZINE HYDROCHLORIDE
  7. IBUPROFEN [Concomitant]
     Active Substance: IBUPROFEN
  8. KETOCONAZOLE [Concomitant]
     Active Substance: KETOCONAZOLE
  9. VITAMINS [Concomitant]
     Active Substance: VITAMINS
  10. TACROLIMUS [Concomitant]
     Active Substance: TACROLIMUS
  11. TRIAMCINOLONE [Concomitant]
     Active Substance: TRIAMCINOLONE

REACTIONS (4)
  - Eye irritation [Unknown]
  - Rash [Unknown]
  - Discomfort [Unknown]
  - Drug ineffective [Unknown]
